FAERS Safety Report 12936770 (Version 2)
Quarter: 2016Q4

REPORT INFORMATION
  Report Type: Spontaneous
  Country: US (occurrence: US)
  Receive Date: 20161114
  Receipt Date: 20161222
  Transmission Date: 20170207
  Serious: No
  Sender: FDA-Public Use
  Company Number: US-ASTRAZENECA-2016SF15086

PATIENT
  Age: 90 Year
  Sex: Female
  Weight: 56.7 kg

DRUGS (2)
  1. SYMBICORT [Suspect]
     Active Substance: BUDESONIDE\FORMOTEROL FUMARATE DIHYDRATE
     Indication: COUGH
     Dosage: 160/4.5 UG, TWO DAILY AT FIRST
     Route: 055
  2. SYMBICORT [Suspect]
     Active Substance: BUDESONIDE\FORMOTEROL FUMARATE DIHYDRATE
     Indication: COUGH
     Dosage: 160/4.5 UG, ONCE DAILY
     Route: 055

REACTIONS (9)
  - Sinusitis [Unknown]
  - Circumstance or information capable of leading to medication error [Unknown]
  - Lung disorder [Unknown]
  - Cough [Unknown]
  - Product taste abnormal [Unknown]
  - Throat irritation [Unknown]
  - Rhinorrhoea [Unknown]
  - Oropharyngeal pain [Unknown]
  - Dysphonia [Unknown]
